FAERS Safety Report 18492339 (Version 1)
Quarter: 2020Q4

REPORT INFORMATION
  Report Type: Spontaneous
  Country: PL (occurrence: PL)
  Receive Date: 20201111
  Receipt Date: 20201111
  Transmission Date: 20210114
  Serious: Yes (Hospitalization, Other)
  Sender: FDA-Public Use
  Company Number: PL-AMGEN-POLSP2020179504

PATIENT
  Age: 62 Year

DRUGS (1)
  1. DARBEPOETIN ALFA [Suspect]
     Active Substance: DARBEPOETIN ALFA
     Indication: ANAEMIA
     Dosage: UNK
     Route: 065

REACTIONS (4)
  - Parvovirus B19 infection [Recovered/Resolved]
  - Aplasia pure red cell [Unknown]
  - BK virus infection [Unknown]
  - Transplant rejection [Unknown]
